FAERS Safety Report 9108171 (Version 1)
Quarter: 2013Q1

REPORT INFORMATION
  Report Type: Spontaneous
  Country: GB (occurrence: GB)
  Receive Date: 20130221
  Receipt Date: 20130221
  Transmission Date: 20140127
  Serious: Yes (Other)
  Sender: FDA-Public Use
  Company Number: GB-PFIZER INC-2013063368

PATIENT
  Age: 50 Year
  Sex: Male
  Weight: 82.55 kg

DRUGS (1)
  1. ISTIN [Suspect]
     Indication: HYPERTENSION
     Dosage: UNK
     Route: 048

REACTIONS (2)
  - Cerebrovascular accident [Unknown]
  - Gingival bleeding [Unknown]
